FAERS Safety Report 25462664 (Version 1)
Quarter: 2025Q2

REPORT INFORMATION
  Report Type: Report from Study
  Country: IT (occurrence: IT)
  Receive Date: 20250620
  Receipt Date: 20250620
  Transmission Date: 20250717
  Serious: Yes (Other)
  Sender: VIIV
  Company Number: IT-VIIV HEALTHCARE LIMITED-IT2022GSK120425

PATIENT

DRUGS (2)
  1. LAMIVUDINE [Suspect]
     Active Substance: LAMIVUDINE
     Indication: HIV infection
  2. DOLUTEGRAVIR [Suspect]
     Active Substance: DOLUTEGRAVIR
     Indication: HIV infection

REACTIONS (3)
  - Blood HIV RNA increased [Unknown]
  - Virologic failure [Unknown]
  - Viraemia [Unknown]
